FAERS Safety Report 21159950 (Version 2)
Quarter: 2022Q3

REPORT INFORMATION
  Report Type: Report from Study
  Country: IN (occurrence: IN)
  Receive Date: 20220802
  Receipt Date: 20220808
  Transmission Date: 20221027
  Serious: Yes (Other)
  Sender: FDA-Public Use
  Company Number: IN-NOVARTISPH-PHHY2018IN110758

PATIENT
  Age: 64 Year
  Sex: Male

DRUGS (3)
  1. CERITINIB [Suspect]
     Active Substance: CERITINIB
     Indication: Neoplasm malignant
     Dosage: 450 MG
     Route: 065
     Dates: start: 20180625
  2. CERITINIB [Suspect]
     Active Substance: CERITINIB
     Dosage: 450 MG, QD
     Route: 048
     Dates: start: 20180628, end: 20180913
  3. CERITINIB [Suspect]
     Active Substance: CERITINIB
     Dosage: 450 MG
     Route: 065
     Dates: end: 202206

REACTIONS (2)
  - Brain neoplasm [Not Recovered/Not Resolved]
  - Paralysis [Not Recovered/Not Resolved]

NARRATIVE: CASE EVENT DATE: 20220601
